FAERS Safety Report 8372606-9 (Version None)
Quarter: 2012Q2

REPORT INFORMATION
  Report Type: 
  Country: None (occurrence: None)
  Receive Date: 20120521
  Receipt Date: 20120517
  Transmission Date: 20120825
  Serious: Yes (Death, Other)
  Sender: FDA-Public Use
  Company Number: AU-B.I. PHARMACEUTICALS,INC./RIDGEFIELD-2012-AU-00929AU

PATIENT

DRUGS (1)
  1. PRADAXA [Suspect]

REACTIONS (2)
  - DISSEMINATED INTRAVASCULAR COAGULATION [None]
  - DEATH [None]
